FAERS Safety Report 6926097-2 (Version None)
Quarter: 2010Q3

REPORT INFORMATION
  Report Type: 
  Country: None (occurrence: None)
  Receive Date: 20100816
  Receipt Date: 20100804
  Transmission Date: 20110219
  Serious: Yes (Other)
  Sender: FDA-Public Use
  Company Number: US-PFIZER INC-2010098272

PATIENT
  Sex: Male
  Weight: 122.45 kg

DRUGS (5)
  1. DILANTIN [Suspect]
     Indication: COMPLEX PARTIAL SEIZURES
     Dosage: 400 MG, 1X/DAY
     Route: 048
     Dates: start: 20100101
  2. DOXYCYCLINE HYCLATE [Interacting]
     Indication: UPPER RESPIRATORY TRACT INFECTION
     Dosage: UNK, 2X/DAY
     Dates: start: 20100730
  3. GLUCOTROL [Concomitant]
     Indication: DIABETES MELLITUS
     Dosage: 25 MG, 1X/DAY
     Route: 048
  4. METFORMIN [Concomitant]
     Indication: DIABETES MELLITUS
     Dosage: 250 MG, 1X/DAY
     Route: 048
  5. HUMULIN 70/30 [Concomitant]
     Indication: DIABETES MELLITUS
     Dosage: UNK, 2X/DAY

REACTIONS (3)
  - ANTICONVULSANT DRUG LEVEL DECREASED [None]
  - DRUG INTERACTION [None]
  - PETIT MAL EPILEPSY [None]
